FAERS Safety Report 6621060-3 (Version None)
Quarter: 2010Q1

REPORT INFORMATION
  Report Type: 
  Country: None (occurrence: None)
  Receive Date: 20100309
  Receipt Date: 20100302
  Transmission Date: 20100710
  Serious: Yes (Hospitalization)
  Sender: FDA-Public Use
  Company Number: A0847593A

PATIENT
  Age: 61 Year
  Sex: Female

DRUGS (4)
  1. REQUIP XL [Suspect]
     Indication: PARKINSON'S DISEASE
     Dosage: 8MG TWICE PER DAY
     Route: 048
     Dates: start: 20090801
  2. AZILECT [Concomitant]
  3. STALEVO 100 [Concomitant]
  4. SINEMET [Concomitant]

REACTIONS (5)
  - ARTHROPATHY [None]
  - GAIT DISTURBANCE [None]
  - NOCTURIA [None]
  - OVERDOSE [None]
  - THERAPEUTIC RESPONSE DECREASED [None]
